FAERS Safety Report 14103185 (Version 2)
Quarter: 2017Q4

REPORT INFORMATION
  Report Type: Report from Study
  Country: None (occurrence: BR)
  Receive Date: 20171018
  Receipt Date: 20171206
  Transmission Date: 20180321
  Serious: Yes (Other)
  Sender: FDA-Public Use
  Company Number: BR-ABBVIE-17K-020-2131600-00

PATIENT
  Age: 24 Year
  Sex: Female
  Weight: 70 kg

DRUGS (3)
  1. HUMIRA [Suspect]
     Active Substance: ADALIMUMAB
     Dosage: WEEK 2
     Route: 058
     Dates: start: 201609, end: 201609
  2. HUMIRA [Suspect]
     Active Substance: ADALIMUMAB
     Dosage: MAINTENANCE DOSE.
     Route: 058
     Dates: start: 2016, end: 20170922
  3. HUMIRA [Suspect]
     Active Substance: ADALIMUMAB
     Indication: CROHN^S DISEASE
     Dosage: WEEK 0, LOADING DOSE.
     Route: 058
     Dates: start: 20160922, end: 20160922

REACTIONS (12)
  - Somnolence [Recovering/Resolving]
  - Dizziness [Recovering/Resolving]
  - Gastrointestinal pain [Recovering/Resolving]
  - Nausea [Recovering/Resolving]
  - Pyrexia [Recovering/Resolving]
  - Rash macular [Not Recovered/Not Resolved]
  - Inner ear inflammation [Not Recovered/Not Resolved]
  - Abdominal pain upper [Recovering/Resolving]
  - Otitis media fungal [Not Recovered/Not Resolved]
  - Pain [Unknown]
  - Tympanic membrane perforation [Not Recovered/Not Resolved]
  - Ear infection bacterial [Not Recovered/Not Resolved]

NARRATIVE: CASE EVENT DATE: 20170924
